FAERS Safety Report 17204450 (Version 1)
Quarter: 2019Q4

REPORT INFORMATION
  Report Type: Spontaneous
  Country: GB (occurrence: GB)
  Receive Date: 20191226
  Receipt Date: 20191226
  Transmission Date: 20200122
  Serious: Yes (Other)
  Sender: FDA-Public Use
  Company Number: GB-JNJFOC-20191233264

PATIENT
  Age: 62 Year
  Sex: Female
  Weight: 61.68 kg

DRUGS (4)
  1. OMEGA-3-ACID ETHYL ESTER [Concomitant]
     Active Substance: OMEGA-3-ACID ETHYL ESTERS
     Dosage: UNK
     Dates: end: 20191104
  2. CHONDROITIN W/GLUCOSAMINE          /02118501/ [Concomitant]
     Dosage: UNK
     Dates: end: 20191104
  3. VITAMIN D                          /00107901/ [Concomitant]
     Active Substance: ERGOCALCIFEROL
  4. RIVAROXABAN [Suspect]
     Active Substance: RIVAROXABAN
     Indication: DEEP VEIN THROMBOSIS
     Dosage: 15 MG, QD
     Route: 048
     Dates: start: 20191104

REACTIONS (1)
  - Thermohyperaesthesia [Recovered/Resolved]

NARRATIVE: CASE EVENT DATE: 20191109
